FAERS Safety Report 15332486 (Version 2)
Quarter: 2018Q4

REPORT INFORMATION
  Report Type: Report from Study
  Country: JP (occurrence: JP)
  Receive Date: 20180830
  Receipt Date: 20181010
  Transmission Date: 20190204
  Serious: Yes (Hospitalization)
  Sender: FDA-Public Use
  Company Number: JP-UCBSA-2018037873

PATIENT
  Age: 57 Year
  Sex: Female
  Weight: 48 kg

DRUGS (4)
  1. E KEPPRA [Concomitant]
     Active Substance: LEVETIRACETAM
     Indication: PARTIAL SEIZURES WITH SECONDARY GENERALISATION
     Dosage: 500MG DAILY
     Route: 048
  2. EXCEGRAN [Concomitant]
     Active Substance: ZONISAMIDE
     Indication: PARTIAL SEIZURES WITH SECONDARY GENERALISATION
     Dosage: 100 MG DAILY
     Route: 048
     Dates: start: 20180124, end: 20180227
  3. LACOSAMIDE. [Suspect]
     Active Substance: LACOSAMIDE
     Dosage: 50 MG, 2X/DAY (BID)
     Route: 048
     Dates: start: 20180227
  4. LACOSAMIDE. [Suspect]
     Active Substance: LACOSAMIDE
     Indication: PARTIAL SEIZURES WITH SECONDARY GENERALISATION
     Dosage: 50 MG, 2X/DAY (BID)
     Route: 048
     Dates: start: 20180120, end: 20180126

REACTIONS (10)
  - Aspartate aminotransferase increased [Recovering/Resolving]
  - Blood creatine phosphokinase increased [Recovered/Resolved]
  - Pneumonia [Recovered/Resolved]
  - Blood albumin decreased [Not Recovered/Not Resolved]
  - Blood calcium decreased [Unknown]
  - Blood alkaline phosphatase increased [Not Recovered/Not Resolved]
  - Urinary tract infection [Recovered/Resolved]
  - Eosinophil count increased [Unknown]
  - Blood lactate dehydrogenase increased [Recovered/Resolved]
  - Alanine aminotransferase increased [Not Recovered/Not Resolved]

NARRATIVE: CASE EVENT DATE: 20180120
